FAERS Safety Report 6835749-4 (Version None)
Quarter: 2010Q3

REPORT INFORMATION
  Report Type: 
  Country: None (occurrence: None)
  Receive Date: 20100713
  Receipt Date: 20100702
  Transmission Date: 20110219
  Serious: Yes (Other)
  Sender: FDA-Public Use
  Company Number: US-PFIZER INC-2010058698

PATIENT
  Sex: Male

DRUGS (1)
  1. SUTENT [Suspect]
     Indication: METASTATIC RENAL CELL CARCINOMA
     Dosage: 25 MG, DAILY, CYCLE 4/2
     Route: 048
     Dates: start: 20090201

REACTIONS (3)
  - BLOOD CREATININE INCREASED [None]
  - COGNITIVE DISORDER [None]
  - LOWER RESPIRATORY TRACT INFECTION [None]
